FAERS Safety Report 7600932-7 (Version None)
Quarter: 2011Q2

REPORT INFORMATION
  Report Type: 
  Country: None (occurrence: None)
  Receive Date: 20110629
  Receipt Date: 20110615
  Transmission Date: 20111010
  Serious: Yes (Disabling)
  Sender: FDA-Public Use
  Company Number: 2011-00423

PATIENT
  Age: 42 Year
  Sex: Male

DRUGS (3)
  1. BECLOMETASONE DIPROPIONATE + FORMOTEROL FUMARATE + FORMOTEROL FUMARATE [Concomitant]
  2. ALBUTEROL [Concomitant]
  3. LISINOPRIL [Suspect]
     Indication: HYPERTENSION
     Dosage: 10 MG (10 MG, 1 IN 1 D), ORAL
     Route: 048
     Dates: start: 20101213, end: 20110311

REACTIONS (1)
  - RAYNAUD'S PHENOMENON [None]
